FAERS Safety Report 16689162 (Version 1)
Quarter: 2019Q3

REPORT INFORMATION
  Report Type: Spontaneous
  Country: US (occurrence: US)
  Receive Date: 20190809
  Receipt Date: 20190809
  Transmission Date: 20191004
  Serious: Yes (Hospitalization, Other)
  Sender: FDA-Public Use
  Company Number: US-PFIZER INC-2019334292

PATIENT
  Age: 2 Year
  Sex: Male

DRUGS (2)
  1. DOXORUBICIN HCL [Suspect]
     Active Substance: DOXORUBICIN HYDROCHLORIDE
     Indication: HEPATOBLASTOMA
     Dosage: UNK (GIVEN UNEVENTFULLY 3 WEEKS AFTER THE SURGERY) (96-H INFUSION, DELIVERED AS 8.0 MG DOXORUBICIN/)
  2. DOXORUBICIN HCL [Suspect]
     Active Substance: DOXORUBICIN HYDROCHLORIDE
     Dosage: 8 MG, UNK  (SECOND COURSE WAS STARTED 4 WEEKS LATER AFTER THE SURGERY) (96-H INFUSION, 36 ML/24 H)

REACTIONS (6)
  - Brachiocephalic vein thrombosis [Recovering/Resolving]
  - Chemical phlebitis [Recovering/Resolving]
  - Skin discolouration [Recovering/Resolving]
  - Product use in unapproved indication [Unknown]
  - Administration site extravasation [Recovering/Resolving]
  - Off label use [Unknown]
